FAERS Safety Report 10081980 (Version 3)
Quarter: 2014Q4

REPORT INFORMATION
  Report Type: Spontaneous
  Country: US (occurrence: US)
  Receive Date: 20140416
  Receipt Date: 20141226
  Transmission Date: 20150528
  Serious: Yes (Other)
  Sender: FDA-Public Use
  Company Number: US-BAYER-2014-054885

PATIENT
  Sex: Female

DRUGS (2)
  1. YASMIN [Suspect]
     Active Substance: DROSPIRENONE\ETHINYL ESTRADIOL
     Dosage: UNK
     Dates: start: 2007, end: 2008
  2. YAZ [Suspect]
     Active Substance: DROSPIRENONE\ETHINYL ESTRADIOL
     Dosage: UNK
     Dates: start: 2007, end: 2008

REACTIONS (7)
  - Thrombosis [None]
  - Pain [None]
  - Cervix carcinoma [None]
  - Cerebrovascular accident [None]
  - Injury [None]
  - Pulmonary embolism [None]
  - Deep vein thrombosis [None]
